FAERS Safety Report 8036011-7 (Version None)
Quarter: 2012Q1

REPORT INFORMATION
  Report Type: 
  Country: None (occurrence: None)
  Receive Date: 20120111
  Receipt Date: 20120106
  Transmission Date: 20120608
  Serious: Yes (Death, Hospitalization, Other)
  Sender: FDA-Public Use
  Company Number: US-ASTELLAS-2011US008404

PATIENT
  Sex: Male

DRUGS (4)
  1. PROGRAF [Suspect]
     Dosage: UNK
     Route: 065
     Dates: end: 20101115
  2. PROGRAF [Suspect]
     Dosage: 1.5 MG AM, 2 MG PM
     Route: 048
     Dates: start: 20110321
  3. PROGRAF [Suspect]
     Dosage: 1.5 MG, BID
     Route: 048
  4. PROGRAF [Suspect]
     Indication: STEM CELL TRANSPLANT
     Dosage: UNK
     Route: 065
     Dates: start: 20100116, end: 20111017

REACTIONS (27)
  - NOCARDIOSIS [None]
  - ACINETOBACTER INFECTION [None]
  - SEPSIS [None]
  - GRAFT VERSUS HOST DISEASE [None]
  - CHOLANGITIS [None]
  - RENAL FAILURE ACUTE [None]
  - PANCREATITIS ACUTE [None]
  - HYPOTENSION [None]
  - UPPER RESPIRATORY TRACT INFECTION [None]
  - SUPRAVENTRICULAR TACHYCARDIA [None]
  - PNEUMONIA [None]
  - ABDOMINAL PAIN [None]
  - NAUSEA [None]
  - HYPERTENSION [None]
  - LOSS OF CONSCIOUSNESS [None]
  - CHRONIC SINUSITIS [None]
  - TREATMENT NONCOMPLIANCE [None]
  - PULSELESS ELECTRICAL ACTIVITY [None]
  - COLITIS [None]
  - PNEUMONIA STREPTOCOCCAL [None]
  - RESPIRATORY FAILURE [None]
  - OFF LABEL USE [None]
  - STENOTROPHOMONAS INFECTION [None]
  - CHOLELITHIASIS [None]
  - VOMITING [None]
  - GRAFT VERSUS HOST DISEASE IN INTESTINE [None]
  - TACHYCARDIA [None]
